FAERS Safety Report 20899674 (Version 1)
Quarter: 2022Q2

REPORT INFORMATION
  Report Type: Spontaneous
  Country: US (occurrence: US)
  Receive Date: 20220601
  Receipt Date: 20220601
  Transmission Date: 20220720
  Serious: No
  Sender: FDA-Public Use
  Company Number: US-Calliditas-2022CAL00102

PATIENT
  Age: 16 Year
  Sex: Female

DRUGS (1)
  1. TARPEYO [Suspect]
     Active Substance: BUDESONIDE
     Indication: IgA nephropathy
     Dosage: 16 MG (4 MG CAPSULES) ONCE DAILY
     Route: 050
     Dates: start: 20220303

REACTIONS (4)
  - Blood urine present [Unknown]
  - Decreased appetite [Unknown]
  - Hypersensitivity [Unknown]
  - Off label use [Unknown]
